FAERS Safety Report 26054370 (Version 1)
Quarter: 2025Q4

REPORT INFORMATION
  Report Type: Report from Study
  Country: CL (occurrence: CL)
  Receive Date: 20251117
  Receipt Date: 20251117
  Transmission Date: 20260118
  Serious: Yes (Other)
  Sender: NOVARTIS
  Company Number: CL-002147023-NVSC2025CL005883

PATIENT
  Age: 34 Year
  Sex: Female
  Weight: 92 kg

DRUGS (4)
  1. COSENTYX [Suspect]
     Active Substance: SECUKINUMAB
     Indication: Psoriatic arthropathy
     Dosage: 150 MG, QMO
     Route: 058
     Dates: start: 20240731, end: 20240926
  2. Supradyn prenatal [Concomitant]
     Indication: Product used for unknown indication
     Dosage: 1 DOSAGE FORM, Q24H, (FROM 09 DEC TO 04 JUL)
     Route: 048
     Dates: start: 20241209, end: 20250704
  3. Bonavid [Concomitant]
     Indication: Product used for unknown indication
     Dosage: 10 DRP, QW (PER WEEK) (FROM 24 JAN TO 24 MAR)
     Route: 048
     Dates: start: 20250124, end: 20250324
  4. Pluriamin [Concomitant]
     Indication: Product used for unknown indication
     Dosage: 1 DOSAGE FORM, BID (1 AM AND 1 PM)
     Route: 048
     Dates: start: 20241209, end: 20250320

REACTIONS (6)
  - Pregnancy on contraceptive [Unknown]
  - Oligohydramnios [Unknown]
  - Gestational hypertension [Unknown]
  - Expired product administered [Unknown]
  - Maternal exposure before pregnancy [Unknown]
  - Normal newborn [Unknown]

NARRATIVE: CASE EVENT DATE: 20250705
